FAERS Safety Report 21728835 (Version 1)
Quarter: 2022Q4

REPORT INFORMATION
  Report Type: Spontaneous
  Country: CA (occurrence: CA)
  Receive Date: 20221214
  Receipt Date: 20221214
  Transmission Date: 20230112
  Serious: Yes (Other)
  Sender: FDA-Public Use
  Company Number: CA-PFIZER INC-202201364073

PATIENT
  Age: 76 Year
  Sex: Male

DRUGS (9)
  1. PAXLOVID [Suspect]
     Active Substance: NIRMATRELVIR\RITONAVIR
     Indication: COVID-19 treatment
     Dosage: UNK
     Route: 048
     Dates: start: 20221202, end: 20221204
  2. ALLOPURINOL [Concomitant]
     Active Substance: ALLOPURINOL
     Dosage: ORAL
  3. ALLOPURINOL [Concomitant]
     Active Substance: ALLOPURINOL
     Dosage: ORAL
  4. INDAPAMIDE\PERINDOPRIL ARGININE [Concomitant]
     Active Substance: INDAPAMIDE\PERINDOPRIL ARGININE
     Dosage: ORAL
  5. METHYLDOPA [Concomitant]
     Active Substance: METHYLDOPA
     Dosage: ORAL
  6. METOPROLOL [Concomitant]
     Active Substance: METOPROLOL
     Dosage: ORAL
  7. PREDNISONE [Concomitant]
     Active Substance: PREDNISONE
     Dosage: ORAL
  8. SYMBICORT [Concomitant]
     Active Substance: BUDESONIDE\FORMOTEROL FUMARATE DIHYDRATE
     Dosage: INHALATION
  9. TAMSULOSIN [Concomitant]
     Active Substance: TAMSULOSIN
     Dosage: ORAL

REACTIONS (2)
  - Hypertension [Recovering/Resolving]
  - Headache [Unknown]

NARRATIVE: CASE EVENT DATE: 20220101
